FAERS Safety Report 25569618 (Version 1)
Quarter: 2025Q3

REPORT INFORMATION
  Report Type: Spontaneous
  Country: US (occurrence: US)
  Receive Date: 20250717
  Receipt Date: 20250717
  Transmission Date: 20251020
  Serious: Yes (Hospitalization, Other)
  Sender: NOVITIUM PHARMA
  Company Number: US-NOVITIUMPHARMA-2025USNVP01593

PATIENT
  Age: 51 Year
  Sex: Female
  Weight: 80.5 kg

DRUGS (7)
  1. ACETAZOLAMIDE [Suspect]
     Active Substance: ACETAZOLAMIDE
     Indication: Neurocysticercosis
  2. ACETAZOLAMIDE [Suspect]
     Active Substance: ACETAZOLAMIDE
  3. ACETAZOLAMIDE [Suspect]
     Active Substance: ACETAZOLAMIDE
  4. DEXAMETHASONE [Suspect]
     Active Substance: DEXAMETHASONE
     Indication: Hydrocephalus
     Route: 042
  5. ALBENDAZOLE [Concomitant]
     Active Substance: ALBENDAZOLE
  6. PRAZIQUANTEL [Concomitant]
     Active Substance: PRAZIQUANTEL
  7. SULFAMETHOXAZOLE\TRIMETHOPRIM [Concomitant]
     Active Substance: SULFAMETHOXAZOLE\TRIMETHOPRIM
     Indication: Prophylaxis

REACTIONS (1)
  - Hypokalaemia [Unknown]
